FAERS Safety Report 6600670-3 (Version None)
Quarter: 2010Q1

REPORT INFORMATION
  Report Type: 
  Country: None (occurrence: None)
  Receive Date: 20100223
  Receipt Date: 20100223
  Transmission Date: 20100710
  Serious: Yes (Other)
  Sender: FDA-Public Use
  Company Number: None

PATIENT
  Age: 37 Year

DRUGS (1)
  1. SPIRIVA [Suspect]
     Indication: ASTHMA
     Dosage: 1 PUFF BID INHAL
     Route: 055
     Dates: start: 20100219, end: 20100222

REACTIONS (2)
  - PRURITUS [None]
  - RASH MACULO-PAPULAR [None]
